FAERS Safety Report 25592386 (Version 1)
Quarter: 2025Q3

REPORT INFORMATION
  Report Type: Report from Study
  Country: EU (occurrence: EU)
  Receive Date: 20250722
  Receipt Date: 20250722
  Transmission Date: 20251021
  Serious: Yes (Other)
  Sender: PFIZER
  Company Number: EU-TAKEDA-2024TUS006843

PATIENT
  Age: 25 Year
  Sex: Male
  Weight: 91 kg

DRUGS (5)
  1. BRENTUXIMAB VEDOTIN [Suspect]
     Active Substance: BRENTUXIMAB VEDOTIN
     Indication: Hodgkin^s disease
     Dosage: 1.8 MG/KG, EVERY 3 WEEKS
     Route: 042
     Dates: start: 20231006
  2. BISEPTOL [Concomitant]
     Active Substance: SULFAMETHOXAZOLE\TRIMETHOPRIM
     Indication: Prophylaxis
     Dosage: 960 MG, EVERY 3 WEEKS
     Route: 048
  3. ACYCLOVIR [Concomitant]
     Active Substance: ACYCLOVIR
     Indication: Prophylaxis
     Dosage: 800 MG, 2X/DAY
     Route: 048
  4. ALLOPURINOL [Concomitant]
     Active Substance: ALLOPURINOL
     Indication: Prophylaxis
     Dosage: 300 MG, 1X/DAY
     Route: 048
  5. VIGANTOL [COLECALCIFEROL-CHOLESTERIN] [Concomitant]
     Indication: Prophylaxis
     Dosage: 2000 IU, 1X/DAY
     Route: 048

REACTIONS (3)
  - Neutropenia [Recovered/Resolved]
  - Polyneuropathy [Recovering/Resolving]
  - Upper respiratory tract infection [Recovered/Resolved]

NARRATIVE: CASE EVENT DATE: 20231027
